FAERS Safety Report 12528706 (Version 1)
Quarter: 2016Q3

REPORT INFORMATION
  Report Type: Spontaneous
  Country: US (occurrence: US)
  Receive Date: 20160705
  Receipt Date: 20160705
  Transmission Date: 20161109
  Serious: Yes (Other)
  Sender: FDA-Public Use
  Company Number: US-TEVA-673002USA

PATIENT
  Sex: Female

DRUGS (1)
  1. COPAXONE [Suspect]
     Active Substance: GLATIRAMER ACETATE
     Indication: MULTIPLE SCLEROSIS
     Dosage: UNKNOWN FORM STRENGTH
     Dates: start: 2001

REACTIONS (5)
  - Secondary progressive multiple sclerosis [Unknown]
  - Injection site pain [Unknown]
  - Malaise [Unknown]
  - Product use issue [Unknown]
  - Multiple sclerosis relapse [Unknown]
